FAERS Safety Report 7125049-X (Version None)
Quarter: 2010Q4

REPORT INFORMATION
  Report Type: 
  Country: None (occurrence: None)
  Receive Date: 20101129
  Receipt Date: 20101115
  Transmission Date: 20110411
  Serious: Yes (Other)
  Sender: FDA-Public Use
  Company Number: US-JNJFOC-20101105248

PATIENT
  Sex: Female
  Weight: 95.26 kg

DRUGS (2)
  1. DURAGESIC-100 [Suspect]
     Indication: PAIN
     Route: 062
  2. DURAGESIC-100 [Suspect]
     Dosage: NDC#50458-0094-05
     Route: 062

REACTIONS (9)
  - EYELID TUMOUR [None]
  - FALL [None]
  - INADEQUATE ANALGESIA [None]
  - INCORRECT DOSE ADMINISTERED [None]
  - LOWER LIMB FRACTURE [None]
  - MUSCULAR WEAKNESS [None]
  - OCULAR NEOPLASM [None]
  - PRODUCT ADHESION ISSUE [None]
  - TREATMENT NONCOMPLIANCE [None]
